FAERS Safety Report 4500759-9 (Version None)
Quarter: 2004Q4

REPORT INFORMATION
  Report Type: 
  Country: None (occurrence: None)
  Receive Date: 20041115
  Receipt Date: 20041108
  Transmission Date: 20050328
  Serious: Yes (Hospitalization)
  Sender: FDA-Public Use
  Company Number: 200421139GDDC

PATIENT
  Age: 66 Year
  Sex: Female

DRUGS (1)
  1. FLUDEX [Suspect]
     Indication: ESSENTIAL HYPERTENSION
     Route: 048

REACTIONS (4)
  - ELECTROCARDIOGRAM T WAVE AMPLITUDE DECREASED [None]
  - HYPOKALAEMIA [None]
  - PRIMARY HYPERALDOSTERONISM [None]
  - TREATMENT NONCOMPLIANCE [None]
